FAERS Safety Report 7596862-X (Version None)
Quarter: 2011Q3

REPORT INFORMATION
  Report Type: 
  Country: None (occurrence: None)
  Receive Date: 20110708
  Receipt Date: 20110627
  Transmission Date: 20111222
  Serious: Yes (Hospitalization, Other)
  Sender: FDA-Public Use
  Company Number: JP-JNJFOC-20110608493

PATIENT
  Age: 5 Decade
  Sex: Female

DRUGS (4)
  1. REMICADE [Suspect]
     Indication: CROHN'S DISEASE
     Route: 042
     Dates: start: 20040101
  2. IMURAN [Suspect]
     Indication: CROHN'S DISEASE
     Route: 048
     Dates: start: 20050101
  3. TPN [Concomitant]
     Indication: CROHN'S DISEASE
     Route: 065
  4. MESALAMINE [Concomitant]
     Indication: CROHN'S DISEASE
     Route: 065

REACTIONS (1)
  - HERPES ZOSTER [None]
